FAERS Safety Report 9748507 (Version 1)
Quarter: 2013Q4

REPORT INFORMATION
  Report Type: Report from Study
  Country: CA (occurrence: CA)
  Receive Date: 20131212
  Receipt Date: 20131212
  Transmission Date: 20140711
  Serious: Yes (Other)
  Sender: FDA-Public Use
  Company Number: CA-UCBSA-105146

PATIENT
  Age: 68 Year
  Sex: Female
  Weight: 61.36 kg

DRUGS (3)
  1. CIMZIA [Suspect]
     Indication: RHEUMATOID ARTHRITIS
     Route: 058
     Dates: start: 20110905
  2. CIMZIA [Suspect]
     Indication: RHEUMATOID ARTHRITIS
     Route: 058
     Dates: start: 20110725, end: 20110822
  3. NO CONCOMITANT MEDICATION [Concomitant]

REACTIONS (1)
  - Herpes zoster [Recovering/Resolving]
